FAERS Safety Report 4709816-5 (Version None)
Quarter: 2005Q3

REPORT INFORMATION
  Report Type: 
  Country: None (occurrence: None)
  Receive Date: 20050708
  Receipt Date: 20050705
  Transmission Date: 20060218
  Serious: Yes (Hospitalization)
  Sender: FDA-Public Use
  Company Number: PHEH2005US07455

PATIENT
  Sex: Female

DRUGS (1)
  1. ZELNORM [Suspect]

REACTIONS (5)
  - ABDOMINAL PAIN UPPER [None]
  - BLOOD AMYLASE INCREASED [None]
  - LIPASE INCREASED [None]
  - NAUSEA [None]
  - PANCREATITIS [None]
